FAERS Safety Report 7056816-9 (Version None)
Quarter: 2010Q4

REPORT INFORMATION
  Report Type: 
  Country: None (occurrence: None)
  Receive Date: 20101022
  Receipt Date: 20100128
  Transmission Date: 20110411
  Serious: No
  Sender: FDA-Public Use
  Company Number: A0841884A

PATIENT
  Age: 11 Year
  Sex: Female

DRUGS (2)
  1. DUAC [Suspect]
     Dosage: 45G PER DAY
     Route: 061
     Dates: start: 20100122, end: 20100127
  2. NO CONCURRENT MEDICATION [Concomitant]

REACTIONS (2)
  - DERMATITIS ACNEIFORM [None]
  - ERYTHEMA [None]
